FAERS Safety Report 7274962-1 (Version None)
Quarter: 2011Q1

REPORT INFORMATION
  Report Type: 
  Country: None (occurrence: None)
  Receive Date: 20110204
  Receipt Date: 20110201
  Transmission Date: 20110831
  Serious: Yes (Hospitalization, Other)
  Sender: FDA-Public Use
  Company Number: BR-ABBOTT-10P-020-0662172-00

PATIENT
  Sex: Female

DRUGS (8)
  1. AMLODIPINE [Concomitant]
     Indication: HYPERTENSION
     Route: 048
  2. IGUASSINA [Concomitant]
     Indication: HYPERTENSION
     Route: 048
  3. PRADAXA [Concomitant]
     Indication: THROMBOSIS PROPHYLAXIS
     Route: 048
  4. FLANCOX [Concomitant]
     Indication: FEMUR FRACTURE
     Route: 048
  5. ZITORIN (?) [Concomitant]
     Indication: BLOOD CHOLESTEROL INCREASED
     Route: 048
  6. HUMIRA [Suspect]
     Indication: RHEUMATOID ARTHRITIS
     Route: 058
     Dates: start: 20081001
  7. ARAVA [Concomitant]
     Indication: RHEUMATOID ARTHRITIS
     Route: 048
  8. PRELONE [Concomitant]
     Indication: RHEUMATOID ARTHRITIS
     Route: 048

REACTIONS (6)
  - FALL [None]
  - FEMUR FRACTURE [None]
  - ANAEMIA [None]
  - MUSCULAR WEAKNESS [None]
  - WEIGHT DECREASED [None]
  - MUSCLE ATROPHY [None]
